FAERS Safety Report 5131826-7 (Version None)
Quarter: 2006Q4

REPORT INFORMATION
  Report Type: 
  Country: None (occurrence: None)
  Receive Date: 20061016
  Receipt Date: 20061004
  Transmission Date: 20070319
  Serious: Yes (Hospitalization, Other)
  Sender: FDA-Public Use
  Company Number: 2006025010

PATIENT
  Age: 44 Year
  Sex: Female
  Weight: 76 kg

DRUGS (3)
  1. CELEBREX [Suspect]
     Indication: BACK PAIN
     Dosage: 200 MG (200MG, 1 IN 1 D); ORAL
     Route: 048
     Dates: start: 20000301, end: 20060214
  2. BERLOSIN (METAMIZOLE SODIUM) [Suspect]
     Indication: PAIN
     Dosage: 3 TABLETS (FREQUENCY: DAILY); ORAL
     Route: 048
     Dates: start: 20060202, end: 20060203
  3. LEVOTHYROXINE SODIUM [Concomitant]

REACTIONS (7)
  - ANTI-PLATELET ANTIBODY POSITIVE [None]
  - AUTOIMMUNE THROMBOCYTOPENIA [None]
  - EPSTEIN-BARR VIRUS ANTIBODY POSITIVE [None]
  - HAEMATEMESIS [None]
  - HAEMORRHAGE [None]
  - PETECHIAE [None]
  - RESPIRATORY TRACT INFECTION [None]
